FAERS Safety Report 21000944 (Version 2)
Quarter: 2022Q3

REPORT INFORMATION
  Report Type: Spontaneous
  Country: FR (occurrence: FR)
  Receive Date: 20220624
  Receipt Date: 20220708
  Transmission Date: 20221027
  Serious: Yes (Hospitalization)
  Sender: FDA-Public Use
  Company Number: FR-TEVA-2022-FR-2047617

PATIENT
  Age: 29 Year
  Sex: Male

DRUGS (8)
  1. DIVALPROEX SODIUM [Interacting]
     Active Substance: DIVALPROEX SODIUM
     Indication: Acute psychosis
     Dosage: 2000 MILLIGRAM DAILY;
     Route: 065
  2. DIVALPROEX SODIUM [Interacting]
     Active Substance: DIVALPROEX SODIUM
     Dosage: 2500 MILLIGRAM DAILY;
     Route: 065
  3. DIAZEPAM [Suspect]
     Active Substance: DIAZEPAM
     Indication: Acute psychosis
     Route: 065
  4. LEVOMEPROMAZINE [Suspect]
     Active Substance: LEVOMEPROMAZINE
     Indication: Acute psychosis
     Route: 065
  5. LITHIUM [Interacting]
     Active Substance: LITHIUM
     Indication: Acute psychosis
     Dosage: 400 MILLIGRAM DAILY;
     Route: 065
  6. PALIPERIDONE [Concomitant]
     Active Substance: PALIPERIDONE
     Indication: Acute psychosis
     Dosage: EXTENDED RELEASE
     Route: 065
  7. PALIPERIDONE [Concomitant]
     Active Substance: PALIPERIDONE
     Route: 065
  8. RISPERIDONE [Concomitant]
     Active Substance: RISPERIDONE
     Indication: Acute psychosis
     Dosage: 4 MILLIGRAM DAILY;
     Route: 065

REACTIONS (4)
  - Hyperammonaemic encephalopathy [Recovering/Resolving]
  - Anticonvulsant drug level increased [Recovering/Resolving]
  - Drug interaction [Unknown]
  - Drug ineffective [Unknown]
